FAERS Safety Report 7268633-5 (Version None)
Quarter: 2011Q1

REPORT INFORMATION
  Report Type: 
  Country: None (occurrence: None)
  Receive Date: 20110201
  Receipt Date: 20110131
  Transmission Date: 20110831
  Serious: Yes (Death, Hospitalization, Disabling)
  Sender: FDA-Public Use
  Company Number: BR-BAYER-201020292LA

PATIENT
  Sex: Male

DRUGS (3)
  1. ASPIRIN [Concomitant]
     Dosage: UNK
     Dates: start: 20101001
  2. BETAFERON [Suspect]
     Indication: PRODUCT USED FOR UNKNOWN INDICATION
     Dosage: BETAJECT
     Route: 065
     Dates: start: 20101022, end: 20101028
  3. DIOVAN [Concomitant]
     Indication: HYPERTENSION
     Dosage: DIOVAN 165 - AS USED DOSE: 1/2 DF
     Route: 048
     Dates: start: 20090101

REACTIONS (9)
  - HEADACHE [None]
  - ABASIA [None]
  - FEELING HOT [None]
  - MULTIPLE SCLEROSIS [None]
  - COLD SWEAT [None]
  - ADVERSE EVENT [None]
  - INFARCTION [None]
  - MUSCULAR WEAKNESS [None]
  - MALAISE [None]
